FAERS Safety Report 16466464 (Version 1)
Quarter: 2019Q2

REPORT INFORMATION
  Report Type: Spontaneous
  Country: US (occurrence: US)
  Receive Date: 20190622
  Receipt Date: 20190622
  Transmission Date: 20190711
  Serious: No
  Sender: FDA-Public Use
  Company Number: PHEH2019US025876

PATIENT

DRUGS (2)
  1. DUREZOL [Suspect]
     Active Substance: DIFLUPREDNATE
     Indication: POST PROCEDURAL INFLAMMATION
  2. DUREZOL [Suspect]
     Active Substance: DIFLUPREDNATE
     Indication: PROCEDURAL PAIN
     Dosage: 2.1 GTT, BID
     Route: 047
     Dates: start: 20190501

REACTIONS (2)
  - Iritis [Recovered/Resolved]
  - Intraocular pressure increased [Recovered/Resolved]

NARRATIVE: CASE EVENT DATE: 20190601
